FAERS Safety Report 11165658 (Version 2)
Quarter: 2016Q1

REPORT INFORMATION
  Report Type: Spontaneous
  Country: US (occurrence: US)
  Receive Date: 20150604
  Receipt Date: 20160325
  Transmission Date: 20160525
  Serious: No
  Sender: FDA-Public Use
  Company Number: US-ASTRAZENECA-2015SE51829

PATIENT
  Sex: Female

DRUGS (2)
  1. BYETTA [Suspect]
     Active Substance: EXENATIDE
     Route: 058
     Dates: start: 20150508
  2. BYETTA [Suspect]
     Active Substance: EXENATIDE
     Dosage: PARTIAL DOSES
     Route: 058

REACTIONS (3)
  - Underdose [Unknown]
  - Intentional product misuse [Unknown]
  - Viral infection [Unknown]
